FAERS Safety Report 11855937 (Version 3)
Quarter: 2016Q1

REPORT INFORMATION
  Report Type: Spontaneous
  Country: PE (occurrence: PE)
  Receive Date: 20151221
  Receipt Date: 20160223
  Transmission Date: 20160526
  Serious: Yes (Other)
  Sender: FDA-Public Use
  Company Number: PE-PFIZER INC-2015301539

PATIENT
  Age: 70 Year
  Sex: Female

DRUGS (2)
  1. XALATAN [Suspect]
     Active Substance: LATANOPROST
     Indication: GLAUCOMA
     Dosage: 1 DROP IN EACH EYE IN THE MORNING AND AT AFTERNOON
     Route: 047
     Dates: start: 201508
  2. GLAUCOTENSIL T [Concomitant]
     Indication: GLAUCOMA
     Dosage: 1 GTT, ON EACH EYE,1X/DAY
     Route: 047
     Dates: start: 2013

REACTIONS (4)
  - Intraocular pressure decreased [Unknown]
  - Inappropriate schedule of drug administration [Recovered/Resolved]
  - Hypotension [Recovered/Resolved]
  - Feeling cold [Recovered/Resolved]

NARRATIVE: CASE EVENT DATE: 2015
